FAERS Safety Report 24610497 (Version 5)
Quarter: 2025Q2

REPORT INFORMATION
  Report Type: Report from Study
  Country: US (occurrence: US)
  Receive Date: 20241112
  Receipt Date: 20250509
  Transmission Date: 20250716
  Serious: No
  Sender: SUNOVION
  Company Number: US-SUMITOMO PHARMA SWITZERLAND GMBH-2024SPA004891

PATIENT

DRUGS (3)
  1. ORGOVYX [Suspect]
     Active Substance: RELUGOLIX
     Indication: Prostate cancer
     Route: 048
  2. ORGOVYX [Suspect]
     Active Substance: RELUGOLIX
     Dosage: 120 MG, QD
     Route: 048
     Dates: start: 20241104
  3. ABIRATERONE ACETATE [Concomitant]
     Active Substance: ABIRATERONE ACETATE
     Indication: Product used for unknown indication
     Route: 065

REACTIONS (12)
  - Brain fog [Unknown]
  - Decreased appetite [Unknown]
  - Weight decreased [Unknown]
  - Muscular weakness [Unknown]
  - Muscle fatigue [Unknown]
  - Abdominal discomfort [Unknown]
  - Bradyphrenia [Unknown]
  - Nausea [Unknown]
  - Flushing [Unknown]
  - Fatigue [Unknown]
  - Red blood cell count decreased [Unknown]
  - Asthenia [Unknown]
